FAERS Safety Report 25193011 (Version 1)
Quarter: 2025Q2

REPORT INFORMATION
  Report Type: Spontaneous
  Country: US (occurrence: US)
  Receive Date: 20250414
  Receipt Date: 20250414
  Transmission Date: 20250717
  Serious: No
  Sender: GLAXOSMITHKLINE
  Company Number: US-GSK-US2025040946

PATIENT
  Sex: Female

DRUGS (2)
  1. NUCALA [Suspect]
     Active Substance: MEPOLIZUMAB
     Indication: Hypereosinophilic syndrome
     Dosage: 300 MG, Q4W SEPARATE INJECTIONS OF 100 MG/ML
     Route: 058
  2. GLEEVEC [Suspect]
     Active Substance: IMATINIB MESYLATE
     Indication: Chronic eosinophilic leukaemia
     Dosage: 100 MG, TID
     Route: 048
     Dates: start: 2017

REACTIONS (1)
  - Amnesia [Not Recovered/Not Resolved]
